FAERS Safety Report 15995818 (Version 1)
Quarter: 2019Q1

REPORT INFORMATION
  Report Type: Spontaneous
  Country: US (occurrence: US)
  Receive Date: 20190222
  Receipt Date: 20190222
  Transmission Date: 20190418
  Serious: No
  Sender: FDA-Public Use
  Company Number: US-PERRIGO-18US001579

PATIENT
  Age: 63 Year
  Sex: Male
  Weight: 88.89 kg

DRUGS (3)
  1. LOPERAMIDE HYDROCHLORIDE. [Suspect]
     Active Substance: LOPERAMIDE HYDROCHLORIDE
     Dosage: 2 MG, SINGLE
     Route: 048
     Dates: start: 20180211, end: 20180211
  2. LOPERAMIDE HYDROCHLORIDE. [Suspect]
     Active Substance: LOPERAMIDE HYDROCHLORIDE
     Indication: DIARRHOEA
     Dosage: 4 MG, QD
     Route: 048
     Dates: start: 20180209, end: 20180210
  3. LYRICA [Concomitant]
     Active Substance: PREGABALIN
     Indication: NEUROPATHY PERIPHERAL
     Dosage: UNK
     Route: 065

REACTIONS (4)
  - Off label use [Recovered/Resolved]
  - Constipation [Not Recovered/Not Resolved]
  - Incorrect product administration duration [Recovered/Resolved]
  - Intentional product use issue [Recovered/Resolved]

NARRATIVE: CASE EVENT DATE: 20180111
